FAERS Safety Report 8992268 (Version 3)
Quarter: 2013Q1

REPORT INFORMATION
  Report Type: Spontaneous
  Country: US (occurrence: US)
  Receive Date: 20121231
  Receipt Date: 20130318
  Transmission Date: 20140127
  Serious: Yes (Hospitalization)
  Sender: FDA-Public Use
  Company Number: US-AMGEN-USASP2012074506

PATIENT
  Age: 61 Year
  Sex: Male
  Weight: 85.26 kg

DRUGS (12)
  1. ENBREL [Suspect]
     Indication: RHEUMATOID ARTHRITIS
     Dosage: 50 MG, QWK
     Route: 058
     Dates: start: 20120706
  2. PREDNISONE [Concomitant]
     Indication: RHEUMATOID ARTHRITIS
     Dosage: 5 MG, QD
     Route: 048
     Dates: start: 2000
  3. LIDODERM [Concomitant]
     Indication: PAIN
     Dosage: UP TO THREE PER DAY
     Dates: start: 2000
  4. LOSARTAN POTASSIUM [Concomitant]
     Dosage: 25 MG, UNK
  5. OXYCODONE [Concomitant]
     Dosage: 5 MG, UNK
  6. CLOPIDOGREL [Concomitant]
     Dosage: 75 MG, UNK
  7. ASPIRIN [Concomitant]
     Dosage: 81 MG, UNK
  8. CALCIUM [Concomitant]
     Dosage: (500 TAB)
  9. TAMSULOSIN [Concomitant]
     Dosage: 0.4 MG, UNK
  10. PRAVASTATIN [Concomitant]
     Dosage: 10 MG, UNK
  11. TRAZODONE [Concomitant]
     Dosage: 50 MG, UNK
  12. B COMPLEX                          /00212701/ [Concomitant]
     Dosage: UNK

REACTIONS (3)
  - Coronary artery disease [Unknown]
  - Dyspnoea [Recovered/Resolved]
  - Cardiac disorder [Unknown]
